FAERS Safety Report 21753251 (Version 1)
Quarter: 2022Q4

REPORT INFORMATION
  Report Type: Spontaneous
  Country: US (occurrence: US)
  Receive Date: 20221220
  Receipt Date: 20221220
  Transmission Date: 20230112
  Serious: No
  Sender: FDA-Public Use
  Company Number: US-SA-SAC20221216000154

PATIENT
  Sex: Male

DRUGS (1)
  1. DUPIXENT [Suspect]
     Active Substance: DUPILUMAB
     Indication: Eczema
     Dosage: DOSE: 300MG FREQUENCY: OTHER
     Route: 058

REACTIONS (2)
  - Periorbital swelling [Recovering/Resolving]
  - Erythema [Recovering/Resolving]
